FAERS Safety Report 9735537 (Version 1)
Quarter: 2013Q4

REPORT INFORMATION
  Report Type: Spontaneous
  Country: US (occurrence: US)
  Receive Date: 20131206
  Receipt Date: 20131206
  Transmission Date: 20140711
  Serious: No
  Sender: FDA-Public Use
  Company Number: US-GILEAD-2009-0023609

PATIENT
  Age: 61 Year
  Sex: Male
  Weight: 68.95 kg

DRUGS (14)
  1. LETAIRIS [Suspect]
     Indication: PULMONARY ARTERIAL HYPERTENSION
     Route: 048
  2. LETAIRIS [Suspect]
     Route: 048
     Dates: start: 20090430
  3. LASIX [Concomitant]
  4. AMLODIPINE [Concomitant]
  5. MINOXIDIL [Concomitant]
  6. TENORMIN [Concomitant]
  7. ADVAIR [Concomitant]
  8. MUCINEX [Concomitant]
  9. PROAIR HFA [Concomitant]
  10. ALPRAZOLAM [Concomitant]
  11. THEOPHYLLINE [Concomitant]
  12. SPIRIVA [Concomitant]
  13. ASA LO-DOSE [Concomitant]
  14. NEXIUM [Concomitant]

REACTIONS (2)
  - Abdominal pain [Recovered/Resolved]
  - Rhinorrhoea [Not Recovered/Not Resolved]
